FAERS Safety Report 17224235 (Version 1)
Quarter: 2020Q1

REPORT INFORMATION
  Report Type: Report from Study
  Country: GR (occurrence: GR)
  Receive Date: 20200102
  Receipt Date: 20200102
  Transmission Date: 20200409
  Serious: Yes (Hospitalization, Other)
  Sender: FDA-Public Use
  Company Number: GR-MYLANLABS-2019M1131320

PATIENT
  Age: 84 Year
  Sex: Male

DRUGS (1)
  1. GLIMEPIRIDE. [Suspect]
     Active Substance: GLIMEPIRIDE
     Indication: DIABETES MELLITUS
     Dosage: UNK
     Route: 048

REACTIONS (7)
  - Haematocrit decreased [Unknown]
  - Abdominal discomfort [Unknown]
  - Vomiting [Unknown]
  - Renal failure [Unknown]
  - Dehydration [Unknown]
  - Blood glucose increased [Unknown]
  - Gastrointestinal carcinoma [Unknown]
